FAERS Safety Report 5911954-6 (Version None)
Quarter: 2008Q4

REPORT INFORMATION
  Report Type: 
  Country: None (occurrence: None)
  Receive Date: 20081008
  Receipt Date: 20080929
  Transmission Date: 20090506
  Serious: Yes (Other)
  Sender: FDA-Public Use
  Company Number: PHHY2008BR23256

PATIENT
  Sex: Female
  Weight: 77 kg

DRUGS (2)
  1. RASILEZ [Suspect]
     Indication: HYPERTENSION
     Dosage: 1 TABLET IN MORNING
     Route: 048
     Dates: start: 20080924, end: 20080928
  2. ATENOLOL [Concomitant]
     Indication: HYPERTENSION
     Dosage: 1 TABLET IN MORNING
     Route: 048

REACTIONS (7)
  - AGITATION [None]
  - APNOEA [None]
  - CHEST DISCOMFORT [None]
  - DEPRESSION [None]
  - DYSPNOEA [None]
  - MALAISE [None]
  - POOR QUALITY SLEEP [None]
